FAERS Safety Report 9852361 (Version 1)
Quarter: 2014Q1

REPORT INFORMATION
  Report Type: Spontaneous
  Country: US (occurrence: None)
  Receive Date: 20140128
  Receipt Date: 20140128
  Transmission Date: 20141002
  Serious: Yes (Other)
  Sender: FDA-Public Use
  Company Number: None

PATIENT
  Age: 49 Year
  Sex: Male
  Weight: 74.39 kg

DRUGS (3)
  1. NYQUIL [Suspect]
     Indication: NASOPHARYNGITIS
     Dates: start: 20140124, end: 20140125
  2. NYQUIL [Suspect]
     Indication: COUGH
     Dates: start: 20140124, end: 20140125
  3. NYQUIL [Suspect]
     Indication: PYREXIA
     Dates: start: 20140124, end: 20140125

REACTIONS (2)
  - Insomnia [None]
  - Headache [None]
